FAERS Safety Report 5826651-5 (Version None)
Quarter: 2008Q3

REPORT INFORMATION
  Report Type: 
  Country: None (occurrence: None)
  Receive Date: 20080730
  Receipt Date: 20080725
  Transmission Date: 20090109
  Serious: Yes (Death)
  Sender: FDA-Public Use
  Company Number: US-JNJFOC-20080706491

PATIENT
  Sex: Female

DRUGS (3)
  1. RISPERDAL CONSTA [Suspect]
     Indication: DRUG USE FOR UNKNOWN INDICATION
  2. PAIN MEDICINE [Suspect]
     Indication: DRUG USE FOR UNKNOWN INDICATION
  3. BENZOS [Suspect]
     Indication: DRUG USE FOR UNKNOWN INDICATION

REACTIONS (1)
  - OVERDOSE [None]
